FAERS Safety Report 6118258-X (Version None)
Quarter: 2009Q1

REPORT INFORMATION
  Report Type: 
  Country: None (occurrence: None)
  Receive Date: 20090314
  Receipt Date: 20090212
  Transmission Date: 20090719
  Serious: No
  Sender: FDA-Public Use
  Company Number: US-ABBOTT-09P-163-0503370-00

PATIENT
  Sex: Male
  Weight: 72.64 kg

DRUGS (2)
  1. HUMIRA [Suspect]
     Indication: CROHN'S DISEASE
     Dates: start: 20061001
  2. HUMIRA [Suspect]

REACTIONS (7)
  - BLOOD CREATININE INCREASED [None]
  - CONJUNCTIVITIS [None]
  - COUGH [None]
  - PROTEIN TOTAL INCREASED [None]
  - RESPIRATORY TRACT CONGESTION [None]
  - SPUTUM DISCOLOURED [None]
  - UPPER RESPIRATORY TRACT INFECTION [None]
